FAERS Safety Report 5094799-1 (Version None)
Quarter: 2006Q3

REPORT INFORMATION
  Report Type: 
  Country: None (occurrence: None)
  Receive Date: 20060731
  Receipt Date: 20060412
  Transmission Date: 20061208
  Serious: No
  Sender: FDA-Public Use
  Company Number: 2006PV012013

PATIENT
  Age: 42 Year
  Sex: Male
  Weight: 124.7392 kg

DRUGS (3)
  1. BYETTA [Suspect]
     Indication: DIABETES MELLITUS NON-INSULIN-DEPENDENT
     Dosage: 5 MCG BID SC
     Route: 058
     Dates: start: 20060404
  2. GLUCOPHAGE [Concomitant]
  3. PRANDIN [Concomitant]

REACTIONS (1)
  - BLOOD GLUCOSE INCREASED [None]
